FAERS Safety Report 4439193-9 (Version None)
Quarter: 2004Q3

REPORT INFORMATION
  Report Type: 
  Country: None (occurrence: None)
  Receive Date: 20040831
  Receipt Date: 20040818
  Transmission Date: 20050211
  Serious: Yes (Other)
  Sender: FDA-Public Use
  Company Number: 2004047157

PATIENT
  Age: 14 Year
  Sex: Male
  Weight: 40.8237 kg

DRUGS (2)
  1. NEURONTIN [Suspect]
     Indication: CEREBRAL PALSY
     Dosage: 600 MG (100 MG, 3 IN 1 D), ORAL
     Route: 048
  2. NEURONTIN [Suspect]
     Indication: ILL-DEFINED DISORDER
     Dosage: 600 MG (100 MG, 3 IN 1 D), ORAL
     Route: 048

REACTIONS (2)
  - MEDICATION ERROR [None]
  - PHARMACEUTICAL PRODUCT COMPLAINT [None]
